FAERS Safety Report 23452105 (Version 1)
Quarter: 2024Q1

REPORT INFORMATION
  Report Type: Spontaneous
  Country: CA (occurrence: CA)
  Receive Date: 20240129
  Receipt Date: 20240129
  Transmission Date: 20240410
  Serious: Yes (Hospitalization)
  Sender: FDA-Public Use
  Company Number: CA-FreseniusKabi-FK202401428

PATIENT
  Age: 63 Year
  Sex: Male

DRUGS (1)
  1. KETOROLAC [Suspect]
     Active Substance: KETOROLAC TROMETHAMINE
     Indication: Dental operation
     Dosage: DOSAGE FORM: NOT SPECIFIED

REACTIONS (2)
  - Duodenal ulcer [Unknown]
  - Duodenal ulcer repair [Unknown]
